FAERS Safety Report 8174564-9 (Version None)
Quarter: 2012Q1

REPORT INFORMATION
  Report Type: 
  Country: None (occurrence: None)
  Receive Date: 20120229
  Receipt Date: 20120223
  Transmission Date: 20120608
  Serious: Yes (Other)
  Sender: FDA-Public Use
  Company Number: US-PFIZER INC-2012048414

PATIENT
  Sex: Female
  Weight: 61.224 kg

DRUGS (3)
  1. CELEBREX [Suspect]
     Dosage: 200 MG, 1X/DAY
     Dates: start: 20120202, end: 20120202
  2. CELEBREX [Suspect]
     Indication: ARTHROPATHY
     Dosage: 200 MG, DAILY
     Dates: start: 20111201
  3. ACETAMINOPHEN [Concomitant]
     Indication: ARTHRITIS
     Dosage: UNK

REACTIONS (6)
  - PAIN [None]
  - HYPERSENSITIVITY [None]
  - RASH GENERALISED [None]
  - VOMITING [None]
  - PHARYNGEAL OEDEMA [None]
  - THROAT TIGHTNESS [None]
